FAERS Safety Report 9119445 (Version 1)
Quarter: 2013Q1

REPORT INFORMATION
  Report Type: Spontaneous
  Country: US (occurrence: US)
  Receive Date: 20130207
  Receipt Date: 20130207
  Transmission Date: 20140127
  Serious: No
  Sender: FDA-Public Use
  Company Number: US-PFIZER INC-2013049242

PATIENT
  Age: 67 Year
  Sex: Male
  Weight: 113 kg

DRUGS (2)
  1. LYRICA [Suspect]
     Indication: SCIATICA
     Dosage: 100 MG, 2X/DAY
     Route: 048
  2. SIMVASTATIN [Concomitant]
     Indication: BLOOD CHOLESTEROL ABNORMAL
     Dosage: 40 MG, 1X/DAY

REACTIONS (1)
  - Weight decreased [Unknown]
